FAERS Safety Report 4906160-8 (Version None)
Quarter: 2006Q1

REPORT INFORMATION
  Report Type: 
  Country: None (occurrence: None)
  Receive Date: 20060209
  Receipt Date: 20060206
  Transmission Date: 20060701
  Serious: Yes (Other)
  Sender: FDA-Public Use
  Company Number: US-GILEAD-2006-0009192

PATIENT
  Age: 69 Year
  Sex: Female

DRUGS (3)
  1. HEPSERA [Suspect]
     Indication: HEPATITIS B
     Route: 048
     Dates: start: 20040210
  2. GLUCOSAMINE [Concomitant]
  3. MULTI-VITAMIN [Concomitant]

REACTIONS (1)
  - HEPATIC NEOPLASM MALIGNANT [None]
